FAERS Safety Report 12683427 (Version 4)
Quarter: 2019Q2

REPORT INFORMATION
  Report Type: Spontaneous
  Country: US (occurrence: US)
  Receive Date: 20160825
  Receipt Date: 20190412
  Transmission Date: 20190711
  Serious: No
  Sender: FDA-Public Use
  Company Number: US-PFIZER INC-2016400508

PATIENT
  Age: 74 Year
  Sex: Female

DRUGS (2)
  1. XANAX [Suspect]
     Active Substance: ALPRAZOLAM
     Dosage: UNK, DAILY (HALF OF THE 0.25)
  2. XANAX [Suspect]
     Active Substance: ALPRAZOLAM
     Indication: ANXIETY
     Dosage: 2 DF, DAILY

REACTIONS (7)
  - Hyperhidrosis [Unknown]
  - Malaise [Unknown]
  - Paraesthesia [Unknown]
  - Abdominal pain upper [Unknown]
  - Dizziness [Unknown]
  - Drug ineffective [Unknown]
  - Intentional product use issue [Unknown]
